FAERS Safety Report 20379073 (Version 6)
Quarter: 2023Q1

REPORT INFORMATION
  Report Type: Report from Study
  Country: US (occurrence: US)
  Receive Date: 20220126
  Receipt Date: 20230222
  Transmission Date: 20230417
  Serious: Yes (Hospitalization)
  Sender: FDA-Public Use
  Company Number: US-NOVARTISPH-NVSC2022US014204

PATIENT
  Age: 79 Year
  Sex: Female

DRUGS (16)
  1. RIBOCICLIB [Suspect]
     Active Substance: RIBOCICLIB
     Indication: HER2 negative breast cancer
     Dosage: 600 MG, QD
     Route: 048
     Dates: start: 20211215, end: 20230118
  2. INVESTIGATIONAL PRODUCT [Suspect]
     Active Substance: INVESTIGATIONAL PRODUCT
     Indication: HER2 negative breast cancer
     Dosage: 600 MG, QD
     Route: 048
     Dates: start: 20211215, end: 20230118
  3. PLACEBO [Suspect]
     Active Substance: UNSPECIFIED INGREDIENT
     Indication: HER2 negative breast cancer
     Dosage: 600 MG, QD
     Route: 048
     Dates: start: 20211215, end: 20230118
  4. RIBOCICLIB [Suspect]
     Active Substance: RIBOCICLIB
     Dosage: UNK
     Route: 048
     Dates: start: 20220124, end: 20230130
  5. INVESTIGATIONAL PRODUCT [Suspect]
     Active Substance: INVESTIGATIONAL PRODUCT
     Dosage: UNK
     Route: 048
     Dates: start: 20220124, end: 20230130
  6. PLACEBO [Suspect]
     Active Substance: UNSPECIFIED INGREDIENT
     Dosage: UNK
     Route: 048
     Dates: start: 20220124, end: 20230130
  7. EXEMESTANE [Suspect]
     Active Substance: EXEMESTANE
     Indication: Supportive care
     Dosage: 25 MG, QD
     Route: 048
     Dates: start: 20211215, end: 20230204
  8. GABAPENTIN [Concomitant]
     Active Substance: GABAPENTIN
     Indication: Pain
     Dosage: 600 MG, BID
     Route: 065
  9. LISINOPRIL [Concomitant]
     Active Substance: LISINOPRIL
     Indication: Hypertension
     Dosage: 90 MG, QD
     Route: 065
  10. LEXAPRO [Concomitant]
     Active Substance: ESCITALOPRAM OXALATE
     Indication: Depression
     Dosage: 20 MG, QD
     Route: 065
  11. TRAMADOL [Concomitant]
     Active Substance: TRAMADOL
     Indication: Arthritis
     Dosage: 50 MG, PRN
     Route: 065
  12. MIRTAPINE [Concomitant]
     Indication: Insomnia
     Dosage: 7.5 MG, PRN
     Route: 065
  13. IBUPROFEN [Concomitant]
     Active Substance: IBUPROFEN
     Indication: Pain
     Dosage: 200 MG, PRN
     Route: 065
  14. VITAMINS [Concomitant]
     Active Substance: VITAMINS
     Indication: General physical condition
     Dosage: UNK
     Route: 065
  15. IMODIUM [Concomitant]
     Active Substance: LOPERAMIDE HYDROCHLORIDE
     Indication: Diarrhoea
     Dosage: 4 MG, PRN
     Route: 065
     Dates: end: 20211227
  16. FOLIC ACID [Concomitant]
     Active Substance: FOLIC ACID
     Indication: Anaemia
     Dosage: 1 MG, QD
     Route: 065
     Dates: end: 20220119

REACTIONS (2)
  - Cellulitis [Recovered/Resolved with Sequelae]
  - Rectal prolapse [Not Recovered/Not Resolved]

NARRATIVE: CASE EVENT DATE: 20220116
